FAERS Safety Report 6977446-0 (Version None)
Quarter: 2010Q3

REPORT INFORMATION
  Report Type: 
  Country: None (occurrence: None)
  Receive Date: 20100910
  Receipt Date: 20100901
  Transmission Date: 20110219
  Serious: Yes (Life-Threatening, Hospitalization, Other)
  Sender: FDA-Public Use
  Company Number: US-NAPPMUNDI-USA-2010-0046331

PATIENT
  Age: 2 Year
  Sex: Male

DRUGS (1)
  1. OXYCODONE HCL [Suspect]
     Indication: DRUG DISPENSING ERROR

REACTIONS (4)
  - ACCIDENTAL EXPOSURE [None]
  - DRUG DISPENSING ERROR [None]
  - FATIGUE [None]
  - SOMNOLENCE [None]
